FAERS Safety Report 6527815-8 (Version None)
Quarter: 2010Q1

REPORT INFORMATION
  Report Type: 
  Country: None (occurrence: None)
  Receive Date: 20100106
  Receipt Date: 20091230
  Transmission Date: 20100710
  Serious: Yes (Other)
  Sender: FDA-Public Use
  Company Number: US-ROCHE-677389

PATIENT
  Sex: Male

DRUGS (3)
  1. PEG-INTERFERON A-2A (RO 25-8310) [Suspect]
     Indication: DRUG USE FOR UNKNOWN INDICATION
     Route: 065
     Dates: start: 20091103
  2. RIBAVIRIN [Suspect]
     Indication: DRUG USE FOR UNKNOWN INDICATION
     Route: 065
     Dates: start: 20091103
  3. CIPROFLOXACIN [Suspect]
     Indication: DIVERTICULITIS
     Route: 065
     Dates: start: 20091219

REACTIONS (3)
  - DIVERTICULITIS [None]
  - RASH [None]
  - URTICARIA [None]
